FAERS Safety Report 16658470 (Version 1)
Quarter: 2019Q3

REPORT INFORMATION
  Report Type: Other
  Country: US (occurrence: US)
  Receive Date: 20190801
  Receipt Date: 20190801
  Transmission Date: 20191004
  Serious: No
  Sender: FDA-Public Use
  Company Number: US-LEADIANT BIOSCIENCES, INC.-2019STPI000242

PATIENT
  Sex: Female

DRUGS (1)
  1. REVCOVI [Suspect]
     Active Substance: ELAPEGADEMASE-LVLR
     Indication: COMBINED IMMUNODEFICIENCY
     Dosage: 2.4 MILLIGRAM, BIW ALTERNATING 3 AND 4 VIALS
     Route: 030
     Dates: start: 20190405

REACTIONS (4)
  - Hot flush [Not Recovered/Not Resolved]
  - Product dose omission [Unknown]
  - Stomatitis [Unknown]
  - Upper respiratory tract infection [Not Recovered/Not Resolved]
